FAERS Safety Report 6460926-4 (Version None)
Quarter: 2009Q4

REPORT INFORMATION
  Report Type: 
  Country: None (occurrence: None)
  Receive Date: 20091130
  Receipt Date: 20091111
  Transmission Date: 20100525
  Serious: No
  Sender: FDA-Public Use
  Company Number: US-B.I. PHARMACEUTICALS,INC./RIDGEFIELD-2009-BP-12226BP

PATIENT
  Age: 69 Year
  Sex: Male

DRUGS (8)
  1. COMBIVENT [Suspect]
     Indication: CHRONIC OBSTRUCTIVE PULMONARY DISEASE
     Dosage: 4 PUF
     Route: 055
     Dates: start: 20090101
  2. COMBIVENT [Suspect]
     Indication: DYSPNOEA
  3. PLAVIX [Concomitant]
     Dosage: 75 MG
     Dates: start: 20081203
  4. FUROSEMIDE [Concomitant]
     Dosage: 40 MG
     Dates: start: 20090409
  5. FLOMAX [Concomitant]
     Dosage: 0.4 MG
     Dates: start: 20090423
  6. DUONEB [Concomitant]
     Dates: start: 20090724
  7. SPIRONOLACTONE [Concomitant]
     Dosage: 25 MG
     Dates: start: 20090609
  8. LIPITOR [Concomitant]
     Dosage: 40 MG
     Dates: start: 20080702

REACTIONS (2)
  - DRUG INEFFECTIVE [None]
  - DYSPNOEA [None]
